FAERS Safety Report 6404290-5 (Version None)
Quarter: 2009Q4

REPORT INFORMATION
  Report Type: 
  Country: None (occurrence: None)
  Receive Date: 20091016
  Receipt Date: 20091015
  Transmission Date: 20100525
  Serious: Yes (Life-Threatening)
  Sender: FDA-Public Use
  Company Number: B0581618A

PATIENT
  Sex: Female
  Weight: 61.6 kg

DRUGS (1)
  1. RELENZA [Suspect]
     Indication: PROPHYLAXIS
     Dosage: 5MG PER DAY
     Route: 055
     Dates: start: 20090630

REACTIONS (4)
  - BRONCHOSPASM [None]
  - CHEST DISCOMFORT [None]
  - DRUG EXPOSURE DURING PREGNANCY [None]
  - WHEEZING [None]
